FAERS Safety Report 17412232 (Version 1)
Quarter: 2020Q1

REPORT INFORMATION
  Report Type: Spontaneous
  Country: SE (occurrence: SE)
  Receive Date: 20200213
  Receipt Date: 20200213
  Transmission Date: 20200409
  Serious: Yes (Other)
  Sender: FDA-Public Use
  Company Number: SE-TEVA-2020-SE-1184606

PATIENT
  Age: 59 Year
  Sex: Female
  Weight: 65 kg

DRUGS (6)
  1. METHOTREXATE. [Suspect]
     Active Substance: METHOTREXATE
     Dosage: ^NOV 2016, MTX WAS RAISED TO 8 TAB/V^.
     Route: 065
     Dates: start: 201611
  2. METHOTREXATE. [Suspect]
     Active Substance: METHOTREXATE
     Dosage: 6 TABLETS
     Route: 065
     Dates: start: 201703
  3. PLAQUENIL [Suspect]
     Active Substance: HYDROXYCHLOROQUINE SULFATE
     Indication: MIXED CONNECTIVE TISSUE DISEASE
     Route: 065
  4. PREDNISOLONE. [Concomitant]
     Active Substance: PREDNISOLONE
     Dosage: 5MG
  5. METHOTREXATE. [Suspect]
     Active Substance: METHOTREXATE
     Dosage: 7 TABLETS
     Route: 065
     Dates: start: 201906, end: 201910
  6. METHOTREXATE. [Suspect]
     Active Substance: METHOTREXATE
     Dosage: ^6 TAB. METHOTREXAT/V +5 MG PREDNISOLON FOR MANY YEARS^.
     Route: 065

REACTIONS (5)
  - Deafness neurosensory [Recovered/Resolved]
  - Nausea [Recovered/Resolved]
  - Dizziness [Recovered/Resolved]
  - Ear discomfort [Recovered/Resolved]
  - Tinnitus [Recovered/Resolved]

NARRATIVE: CASE EVENT DATE: 2019
